FAERS Safety Report 12974243 (Version 2)
Quarter: 2016Q4

REPORT INFORMATION
  Report Type: Spontaneous
  Country: US (occurrence: US)
  Receive Date: 20161125
  Receipt Date: 20161227
  Transmission Date: 20170207
  Serious: Yes (Hospitalization, Other)
  Sender: FDA-Public Use
  Company Number: US-009507513-1611USA007897

PATIENT
  Age: 82 Year
  Sex: Male

DRUGS (1)
  1. TICE BCG [Suspect]
     Active Substance: BACILLUS CALMETTE-GUERIN SUBSTRAIN TICE LIVE ANTIGEN
     Indication: BLADDER TRANSITIONAL CELL CARCINOMA STAGE III
     Dosage: THREE TREATMENTS WEEKLY, EVERY 6 MONTHS
     Route: 043

REACTIONS (4)
  - Disseminated Bacillus Calmette-Guerin infection [Recovering/Resolving]
  - Staphylococcal bacteraemia [Recovering/Resolving]
  - Graft infection [Recovering/Resolving]
  - Staphylococcal infection [Recovering/Resolving]
